FAERS Safety Report 21463349 (Version 2)
Quarter: 2022Q4

REPORT INFORMATION
  Report Type: Spontaneous
  Country: DE (occurrence: None)
  Receive Date: 20221017
  Receipt Date: 20221128
  Transmission Date: 20230112
  Serious: Yes (Other)
  Sender: FDA-Public Use
  Company Number: DE-ROCHE-3198780

PATIENT
  Sex: Male

DRUGS (10)
  1. MABTHERA [Suspect]
     Active Substance: RITUXIMAB
     Indication: Diffuse large B-cell lymphoma
     Dosage: R-CHOP
     Route: 065
     Dates: start: 20210517, end: 20211007
  2. MABTHERA [Suspect]
     Active Substance: RITUXIMAB
     Dosage: R-DHAP
     Route: 065
     Dates: start: 20211125, end: 20211217
  3. MABTHERA [Suspect]
     Active Substance: RITUXIMAB
     Dosage: WITH POLATUZUMAB AND BENDAMUSTIN
     Route: 065
     Dates: start: 20220103, end: 20220217
  4. MABTHERA [Suspect]
     Active Substance: RITUXIMAB
     Dosage: LAST APPLICATION AS POLY-BR
     Route: 065
     Dates: start: 20220124, end: 20220124
  5. POLIVY [Suspect]
     Active Substance: POLATUZUMAB VEDOTIN-PIIQ
     Indication: Diffuse large B-cell lymphoma
     Dosage: WITH RITUXIMAB AND BENDAMUSTIN
     Route: 065
     Dates: start: 20220103, end: 20220217
  6. POLIVY [Suspect]
     Active Substance: POLATUZUMAB VEDOTIN-PIIQ
     Dosage: LAST APPLICATION AS POLY-BR
     Route: 065
     Dates: start: 20220124, end: 20220124
  7. GAZYVA [Suspect]
     Active Substance: OBINUTUZUMAB
     Indication: Diffuse large B-cell lymphoma
     Dosage: WITH RITUXIMAB AND POLATUZUMAB
     Route: 042
     Dates: start: 20220103, end: 20220217
  8. GLOFITAMAB [Suspect]
     Active Substance: GLOFITAMAB
     Indication: Diffuse large B-cell lymphoma
     Route: 065
  9. BENDAMUSTINE [Suspect]
     Active Substance: BENDAMUSTINE
     Indication: Diffuse large B-cell lymphoma
     Dosage: WITH RITUXIMAB AND POLATUZUMAB
     Route: 065
     Dates: start: 20220103, end: 20220217
  10. BENDAMUSTINE [Suspect]
     Active Substance: BENDAMUSTINE
     Dosage: LAST APPLICATION AS POLY-BR
     Route: 065
     Dates: start: 20220124, end: 20220124

REACTIONS (4)
  - Lymphoma [Not Recovered/Not Resolved]
  - Glomerular filtration rate increased [Not Recovered/Not Resolved]
  - Alanine aminotransferase increased [Not Recovered/Not Resolved]
  - Blood bilirubin increased [Not Recovered/Not Resolved]
